FAERS Safety Report 22859543 (Version 7)
Quarter: 2023Q4

REPORT INFORMATION
  Report Type: Report from Study
  Country: US (occurrence: US)
  Receive Date: 20230824
  Receipt Date: 20231020
  Transmission Date: 20240109
  Serious: Yes (Other)
  Sender: FDA-Public Use
  Company Number: US-INSMED, INC.-2023-02941-US

PATIENT
  Age: 72 Year
  Sex: Female

DRUGS (5)
  1. ARIKAYCE [Suspect]
     Active Substance: AMIKACIN
     Indication: Mycobacterium avium complex infection
     Dosage: 590 MILLIGRAM
     Route: 055
     Dates: start: 20220202, end: 202202
  2. ARIKAYCE [Suspect]
     Active Substance: AMIKACIN
     Indication: Pneumonia pseudomonal
     Dosage: 590 MILLIGRAM, QD
     Route: 055
     Dates: start: 202308, end: 2023
  3. ARIKAYCE [Suspect]
     Active Substance: AMIKACIN
     Dosage: 590 MILLIGRAM, QD
     Route: 055
     Dates: start: 2023
  4. ALBUTEROL [Concomitant]
     Active Substance: ALBUTEROL
     Indication: Product used for unknown indication
     Dosage: UNK
     Route: 065
  5. COMBIVENT [Concomitant]
     Active Substance: ALBUTEROL SULFATE\IPRATROPIUM BROMIDE
     Indication: Product used for unknown indication
     Dosage: UNK
     Route: 065

REACTIONS (19)
  - Dependence on oxygen therapy [Not Recovered/Not Resolved]
  - Asthma [Unknown]
  - COVID-19 [Unknown]
  - Chills [Not Recovered/Not Resolved]
  - Dyspnoea exertional [Recovering/Resolving]
  - Sputum increased [Not Recovered/Not Resolved]
  - Illness [Recovering/Resolving]
  - Dysphonia [Recovering/Resolving]
  - Wheezing [Recovering/Resolving]
  - Cough [Not Recovered/Not Resolved]
  - Oropharyngeal pain [Unknown]
  - Malaise [Unknown]
  - Dyspnoea [Recovering/Resolving]
  - Product preparation error [Unknown]
  - Off label use [Unknown]
  - Drug dose omission by device [Unknown]
  - Product dose omission issue [Unknown]
  - Intentional dose omission [Unknown]
  - Device issue [Unknown]

NARRATIVE: CASE EVENT DATE: 20220201
